FAERS Safety Report 8427574-8 (Version None)
Quarter: 2012Q2

REPORT INFORMATION
  Report Type: 
  Country: None (occurrence: None)
  Receive Date: 20120611
  Receipt Date: 20120606
  Transmission Date: 20120825
  Serious: Yes (Other)
  Sender: FDA-Public Use
  Company Number: US-PFIZER INC-2012136310

PATIENT
  Sex: Male
  Weight: 77.1 kg

DRUGS (5)
  1. LIPITOR [Suspect]
     Dosage: 10 MG, ALTERNATE DAY
  2. LIPITOR [Suspect]
     Indication: BLOOD CHOLESTEROL INCREASED
     Dosage: 80 MG, 1X/DAY
     Dates: start: 20101201
  3. LIPITOR [Suspect]
     Dosage: 20 MG, 1X/DAY
  4. LIPITOR [Suspect]
     Dosage: 10 MG, 1X/DAY
  5. LIPITOR [Suspect]
     Dosage: 40 MG, 1X/DAY

REACTIONS (2)
  - HIGH DENSITY LIPOPROTEIN DECREASED [None]
  - CARDIAC DISORDER [None]
